FAERS Safety Report 7575451-7 (Version None)
Quarter: 2011Q2

REPORT INFORMATION
  Report Type: 
  Country: None (occurrence: None)
  Receive Date: 20110627
  Receipt Date: 20110621
  Transmission Date: 20111010
  Serious: Yes (Death, Other)
  Sender: FDA-Public Use
  Company Number: US-CELGENEUS-163-21880-11040536

PATIENT
  Sex: Male

DRUGS (14)
  1. ENTOCORT EC [Concomitant]
     Dosage: 3MG/24HR
     Route: 065
  2. FISH OIL [Concomitant]
     Route: 048
  3. COREG [Concomitant]
     Dosage: 25 MILLIGRAM
     Route: 065
  4. SIMVASTATIN [Concomitant]
     Dosage: 10 MILLIGRAM
     Route: 065
  5. ASPIRIN [Concomitant]
     Dosage: 325 MILLIGRAM
     Route: 065
  6. LANTUS [Concomitant]
     Dosage: SOLOSTAR
     Route: 050
  7. MULTI-VITAMINS [Concomitant]
     Route: 065
  8. HUMALOG [Concomitant]
     Dosage: 75/25
     Route: 050
  9. REVLIMID [Suspect]
     Indication: MULTIPLE MYELOMA
     Dosage: 10 MILLIGRAM
     Route: 048
     Dates: start: 20101230, end: 20110403
  10. ASACOL [Concomitant]
     Dosage: 400 MILLIGRAM
     Route: 065
  11. FUROSEMIDE [Concomitant]
     Dosage: 20 MILLIGRAM
     Route: 065
  12. ATACAND [Concomitant]
     Dosage: 32 MILLIGRAM
     Route: 065
  13. COQ [Concomitant]
     Dosage: 100 MILLIGRAM
     Route: 065
  14. NORCO [Concomitant]
     Dosage: 7.5/325
     Route: 065

REACTIONS (2)
  - SEPSIS [None]
  - NEUTROPHIL COUNT DECREASED [None]
